FAERS Safety Report 25473035 (Version 1)
Quarter: 2025Q2

REPORT INFORMATION
  Report Type: Spontaneous
  Country: ES (occurrence: ES)
  Receive Date: 20250624
  Receipt Date: 20250624
  Transmission Date: 20250717
  Serious: Yes (Other)
  Sender: FRESENIUS KABI
  Company Number: None

PATIENT
  Age: 64 Year
  Sex: Female

DRUGS (10)
  1. OXALIPLATIN [Suspect]
     Active Substance: OXALIPLATIN
     Indication: Adenocarcinoma of colon
     Route: 042
     Dates: start: 20250515
  2. CAPECITABINE [Suspect]
     Active Substance: CAPECITABINE
     Indication: Adenocarcinoma of colon
     Route: 042
     Dates: start: 20250515
  3. BEVACIZUMAB [Suspect]
     Active Substance: BEVACIZUMAB
     Indication: Adenocarcinoma of colon
     Route: 042
     Dates: start: 20250515
  4. OMEPRAZOL CINFA 20 mg HARD GASTRORESISTANT CAPSULES EFG, 28 capsules [Concomitant]
     Indication: Product used for unknown indication
     Dosage: FOA: GASTRO-RESISTANT CAPSULE, HARD
     Route: 048
     Dates: start: 20240911
  5. NATECAL D FLAS 1.500 MG/400 UI BUCODISPERSIBLE TABLETS, 60 tablets [Concomitant]
     Indication: Product used for unknown indication
     Dosage: FOA: ORODISPERSIBLE TABLET
     Route: 048
     Dates: start: 20120502
  6. HIDROCLOROTIAZIDA KERN PHARMA 50 mg EFG tablets, 20 tablets [Concomitant]
     Indication: Product used for unknown indication
     Dosage: COMPRESSED MEDIUM OF 50 MG EVERY 24 HOURS?FOA: TABLET
     Route: 048
     Dates: start: 20120502
  7. LYRICA 75 MG HARD CAPSULES, 56 capsules [Concomitant]
     Indication: Product used for unknown indication
     Dosage: FOA: CAPSULE, HARD
     Route: 048
     Dates: start: 20151009
  8. CYMBALTA 60 MG HARD GASTRO-RESISTANT CAPSULES, 28 capsules [Concomitant]
     Indication: Product used for unknown indication
     Dosage: FOA: GASTRO-RESISTANT CAPSULE, HARD
     Route: 048
     Dates: start: 20220218
  9. DELTIUS 25.000 UI/2,5 ML 6 ORAL SOLUTION, 4 vials of 2.5 ml [Concomitant]
     Indication: Product used for unknown indication
     Dosage: FOA: ORAL SOLUTION
     Route: 048
     Dates: start: 20181004
  10. PROLIA 60 mg INJECTABLE SOLUTION IN PRE-FILLED SYRINGE, 1 pre-filled s [Concomitant]
     Indication: Product used for unknown indication
     Route: 058
     Dates: start: 20140530

REACTIONS (1)
  - Anaphylactic reaction [Recovered/Resolved]

NARRATIVE: CASE EVENT DATE: 20250515
